FAERS Safety Report 23187431 (Version 5)
Quarter: 2024Q2

REPORT INFORMATION
  Report Type: Spontaneous
  Country: US (occurrence: US)
  Receive Date: 20231115
  Receipt Date: 20240508
  Transmission Date: 20240716
  Serious: No
  Sender: FDA-Public Use
  Company Number: US-BRISTOL-MYERS SQUIBB COMPANY-2023-164249

PATIENT
  Age: 79 Year
  Sex: Male

DRUGS (2)
  1. POMALYST [Suspect]
     Active Substance: POMALIDOMIDE
     Indication: Plasma cell myeloma
     Route: 048
  2. POMALYST [Suspect]
     Active Substance: POMALIDOMIDE

REACTIONS (7)
  - Hyperhidrosis [Unknown]
  - Illness [Unknown]
  - Blister [Unknown]
  - Rhinorrhoea [Unknown]
  - Treatment noncompliance [Unknown]
  - Confusional state [Unknown]
  - Product dose omission issue [Unknown]
